FAERS Safety Report 26135829 (Version 3)
Quarter: 2025Q4

REPORT INFORMATION
  Report Type: Spontaneous
  Country: JP (occurrence: JP)
  Receive Date: 20251209
  Receipt Date: 20251225
  Transmission Date: 20260117
  Serious: Yes (Hospitalization)
  Sender: ALEXION PHARMACEUTICALS
  Company Number: JP-ASTRAZENECA-202512JPN004157JP

PATIENT
  Age: 88 Year
  Sex: Male
  Weight: 62 kg

DRUGS (12)
  1. DAPAGLIFLOZIN [Suspect]
     Active Substance: DAPAGLIFLOZIN
     Indication: Chronic kidney disease
     Dosage: 10 MILLIGRAM, QD
     Route: 061
  2. NIFEDIPINE [Concomitant]
     Active Substance: NIFEDIPINE
     Dosage: 20 MG
     Route: 061
  3. MONTELUKAST [Concomitant]
     Active Substance: MONTELUKAST
     Dosage: 10 MILLIGRAM
     Route: 061
  4. SILODOSIN [Concomitant]
     Active Substance: SILODOSIN
     Dosage: 4 MILLIGRAM
     Route: 061
  5. SEREVENT DISKUS [Concomitant]
     Active Substance: SALMETEROL XINAFOATE
     Dosage: 50 DISKUS, INHALATION
  6. ALVESCO [Concomitant]
     Active Substance: CICLESONIDE
     Dosage: 200 MCG INHALER
  7. MAGNESIUM OXIDE [Concomitant]
     Active Substance: MAGNESIUM OXIDE
     Dosage: 330 MG
     Route: 061
  8. LUMIGAN [Concomitant]
     Active Substance: BIMATOPROST
     Dosage: 0.03 PERCENT
  9. RIPASUDIL HYDROCHLORIDE [Concomitant]
     Active Substance: RIPASUDIL HYDROCHLORIDE
     Dosage: 0.4 PERCENT
  10. PIRENOXINE [Concomitant]
     Active Substance: PIRENOXINE
     Dosage: 0.005 PERCENT
  11. KALLIDINOGENASE [Concomitant]
     Active Substance: KALLIDINOGENASE
     Dosage: 50
     Route: 061
  12. BRIMONIDINE TARTRATE\BRINZOLAMIDE [Concomitant]
     Active Substance: BRIMONIDINE TARTRATE\BRINZOLAMIDE
     Dosage: UNK

REACTIONS (2)
  - Urinary tract infection [Recovered/Resolved]
  - Fall [Unknown]

NARRATIVE: CASE EVENT DATE: 20250914
